FAERS Safety Report 8901758 (Version 1)
Quarter: 2012Q4

REPORT INFORMATION
  Report Type: Spontaneous
  Country: US (occurrence: None)
  Receive Date: 20121105
  Receipt Date: 20121105
  Transmission Date: 20130627
  Serious: Yes (Life-Threatening, Other)
  Sender: FDA-Public Use
  Company Number: 2012P1061278

PATIENT
  Age: 37 Year
  Sex: Female

DRUGS (2)
  1. ERYTHROMYCIN [Suspect]
     Indication: LYMPHADENITIS
  2. ERYTHROMYCIN [Suspect]
     Indication: LYMPHADENITIS
     Route: 023

REACTIONS (6)
  - Pruritus [None]
  - Urticaria [None]
  - Dyspnoea [None]
  - Pharyngeal oedema [None]
  - Hypersensitivity [None]
  - False negative investigation result [None]
